FAERS Safety Report 18678386 (Version 1)
Quarter: 2020Q4

REPORT INFORMATION
  Report Type: Spontaneous
  Country: US (occurrence: US)
  Receive Date: 20201230
  Receipt Date: 20201230
  Transmission Date: 20210114
  Serious: Yes (Hospitalization, Other)
  Sender: FDA-Public Use
  Company Number: US-ALKEM LABORATORIES LIMITED-US-ALKEM-2020-03852

PATIENT
  Age: 47 Year
  Sex: Female

DRUGS (7)
  1. ACICLOVIR [Suspect]
     Active Substance: ACYCLOVIR
     Dosage: 45 MILLIGRAM/KILOGRAM, QD
     Route: 048
  2. ACICLOVIR [Suspect]
     Active Substance: ACYCLOVIR
     Dosage: 5 MILLIGRAM/KILOGRAM, BID
     Route: 048
  3. FOSCARNET [Suspect]
     Active Substance: FOSCARNET
     Indication: HERPES SIMPLEX
     Dosage: 2 GRAM, QD
     Route: 065
  4. TACROLIMUS. [Suspect]
     Active Substance: TACROLIMUS
     Indication: IMMUNOSUPPRESSION
     Dosage: 1 MILLIGRAM/KILOGRAM, QD
     Route: 065
  5. MYCOPHENOLATE MOFETIL. [Suspect]
     Active Substance: MYCOPHENOLATE MOFETIL
     Indication: IMMUNOSUPPRESSION
     Dosage: 1 MILLIGRAM/KILOGRAM, QD
     Route: 065
  6. ACICLOVIR [Suspect]
     Active Substance: ACYCLOVIR
     Indication: HERPES SIMPLEX
     Dosage: 5 MILLIGRAM/KILOGRAM, EVERY 8 HOURS
     Route: 048
  7. PREDNISONE. [Suspect]
     Active Substance: PREDNISONE
     Indication: IMMUNOSUPPRESSION
     Dosage: 1 MILLIGRAM/KILOGRAM, QD
     Route: 065

REACTIONS (2)
  - Herpes simplex [Recovered/Resolved]
  - Drug resistance [Unknown]
